FAERS Safety Report 5271551-5 (Version None)
Quarter: 2007Q1

REPORT INFORMATION
  Report Type: 
  Country: None (occurrence: None)
  Receive Date: 20070315
  Receipt Date: 20070309
  Transmission Date: 20070707
  Serious: Yes (Other)
  Sender: FDA-Public Use
  Company Number: 2007S1000051

PATIENT
  Age: 19 Day
  Sex: Male

DRUGS (8)
  1. NITRIC OXIDE [Suspect]
     Indication: LUNG DISORDER
     Dosage: 5 PPM; INH_GAS; INH
     Route: 055
     Dates: start: 20070217
  2. NITRIC OXIDE [Suspect]
     Indication: PROPHYLAXIS
     Dosage: 5 PPM; INH_GAS; INH
     Route: 055
     Dates: start: 20070217
  3. INDOMETHACIN [Concomitant]
  4. CAFFEINE (CAFFEINE) [Concomitant]
  5. CEFUROXIME [Concomitant]
  6. MORPHINE [Concomitant]
  7. DOPAMINE HCL [Concomitant]
  8. ERYTHROPOIETIN (ERYTHROPOIETIN) [Concomitant]

REACTIONS (2)
  - PATENT DUCTUS ARTERIOSUS [None]
  - RESPIRATORY DISORDER NEONATAL [None]
